FAERS Safety Report 16234468 (Version 3)
Quarter: 2023Q2

REPORT INFORMATION
  Report Type: Spontaneous
  Country: LV (occurrence: LV)
  Receive Date: 20190424
  Receipt Date: 20230606
  Transmission Date: 20230722
  Serious: Yes (Other)
  Sender: FDA-Public Use
  Company Number: LV-MYLANLABS-2019M1038443

PATIENT
  Sex: Female

DRUGS (24)
  1. METOPROLOL [Suspect]
     Active Substance: METOPROLOL
     Indication: Acute myocardial infarction
     Dosage: UNK
     Route: 064
     Dates: start: 2010
  2. METOPROLOL [Suspect]
     Active Substance: METOPROLOL
     Indication: Pulmonary embolism
  3. FONDAPARINUX [Suspect]
     Active Substance: FONDAPARINUX
     Indication: Product used for unknown indication
     Dosage: UNK
     Route: 064
     Dates: start: 2010
  4. POTASSIUM CHLORIDE [Suspect]
     Active Substance: POTASSIUM CHLORIDE
     Indication: Acute myocardial infarction
     Dosage: 7.45 PERCENT
     Route: 064
     Dates: start: 2010
  5. POTASSIUM CHLORIDE [Suspect]
     Active Substance: POTASSIUM CHLORIDE
     Indication: Pulmonary embolism
  6. MAGNESIUM SULFATE [Suspect]
     Active Substance: MAGNESIUM SULFATE
     Indication: Pulmonary embolism
     Dosage: UNK
     Route: 064
     Dates: start: 2010
  7. MAGNESIUM SULFATE [Suspect]
     Active Substance: MAGNESIUM SULFATE
     Indication: Acute myocardial infarction
  8. INTEGRILIN [Suspect]
     Active Substance: EPTIFIBATIDE
     Indication: Product used for unknown indication
     Dosage: SINGLE DOSE
     Route: 064
  9. INTEGRILIN [Suspect]
     Active Substance: EPTIFIBATIDE
     Dosage: 180 MILLIGRAM, SINGLE DOSE
     Route: 064
  10. NOREPINEPHRINE [Suspect]
     Active Substance: NOREPINEPHRINE
     Indication: Haemodynamic instability
     Dosage: 0.12 MICROGRAM/KILOGRAM
     Route: 064
     Dates: start: 2010
  11. HEPARIN [Suspect]
     Active Substance: HEPARIN SODIUM
     Indication: Product used for unknown indication
     Dosage: UNK, SINGLE DOSE 7000 DV
     Route: 064
     Dates: start: 2010
  12. VISIPAQUE [Suspect]
     Active Substance: IODIXANOL
     Indication: Product used for unknown indication
     Dosage: UNK, 320
     Route: 064
     Dates: start: 2010
  13. ISOSORBIDE DINITRATE [Suspect]
     Active Substance: ISOSORBIDE DINITRATE
     Indication: Acute myocardial infarction
     Dosage: UNK
     Route: 064
     Dates: start: 2010
  14. ISOSORBIDE DINITRATE [Suspect]
     Active Substance: ISOSORBIDE DINITRATE
     Indication: Pulmonary embolism
  15. LEVOSIMENDAN [Suspect]
     Active Substance: LEVOSIMENDAN
     Indication: Haemodynamic instability
     Dosage: 0.1 MICROGRAM/KILOGRAM
     Route: 064
     Dates: start: 2010
  16. DOBUTAMINE [Suspect]
     Active Substance: DOBUTAMINE HYDROCHLORIDE
     Indication: Haemodynamic instability
     Dosage: UNK
     Route: 064
     Dates: start: 2010
  17. DOBUTAMINE [Suspect]
     Active Substance: DOBUTAMINE HYDROCHLORIDE
     Dosage: 5 MICROGRAM/KILOGRAM
     Route: 064
     Dates: start: 2010
  18. ASPIRIN [Suspect]
     Active Substance: ASPIRIN
     Indication: Product used for unknown indication
     Dosage: SINGLE DOSE
     Route: 064
  19. ASPIRIN [Suspect]
     Active Substance: ASPIRIN
     Dosage: 500 MILLIGRAM, SINGLE DOSE
     Route: 064
     Dates: start: 2010
  20. OXYGEN [Suspect]
     Active Substance: OXYGEN
     Indication: Product used for unknown indication
     Dosage: SATURATED,
     Route: 064
     Dates: start: 2010
  21. MORPHINE [Suspect]
     Active Substance: MORPHINE
     Indication: Acute myocardial infarction
     Dosage: UNK
     Route: 064
     Dates: start: 2010
  22. MORPHINE [Suspect]
     Active Substance: MORPHINE
     Indication: Pulmonary embolism
  23. UNSPECIFIED INGREDIENT [Suspect]
     Active Substance: UNSPECIFIED INGREDIENT
     Indication: Pulmonary embolism
     Dosage: UNK
     Route: 064
     Dates: start: 2010
  24. UNSPECIFIED INGREDIENT [Suspect]
     Active Substance: UNSPECIFIED INGREDIENT
     Indication: Acute myocardial infarction

REACTIONS (2)
  - Apgar score low [Unknown]
  - Foetal exposure during pregnancy [Unknown]

NARRATIVE: CASE EVENT DATE: 20100101
